FAERS Safety Report 5594527-7 (Version None)
Quarter: 2008Q1

REPORT INFORMATION
  Report Type: 
  Country: None (occurrence: None)
  Receive Date: 20080117
  Receipt Date: 20080114
  Transmission Date: 20080703
  Serious: Yes (Life-Threatening)
  Sender: FDA-Public Use
  Company Number: IT-JNJFOC-20071204789

PATIENT
  Age: 34 Year
  Sex: Female

DRUGS (2)
  1. TOPAMAX [Suspect]
     Indication: PETIT MAL EPILEPSY
     Route: 048
  2. KEPPRA [Suspect]
     Indication: PETIT MAL EPILEPSY
     Route: 048

REACTIONS (3)
  - COMA [None]
  - HYPERAMMONAEMIA [None]
  - SOMNOLENCE [None]
